FAERS Safety Report 25835265 (Version 1)
Quarter: 2025Q3

REPORT INFORMATION
  Report Type: Spontaneous
  Country: BR (occurrence: BR)
  Receive Date: 20250923
  Receipt Date: 20250923
  Transmission Date: 20251021
  Serious: Yes (Other)
  Sender: CHEPLAPHARM
  Company Number: BR-CHEPLA-2025011082

PATIENT
  Age: 45 Year
  Sex: Male

DRUGS (2)
  1. CLONAZEPAM [Suspect]
     Active Substance: CLONAZEPAM
     Indication: Anxiety
     Dosage: MAH REF 115240011, APPROXIMATELY 5 MONTHS AGO (APR-2025)?DAILY DOSE: 20 DROP
     Route: 048
     Dates: start: 202504
  2. Zap [Concomitant]
     Indication: Anxiety
     Dosage: 1 TABLET AT NIGHT?DAILY DOSE: 1 DOSAGE FORM

REACTIONS (3)
  - Intracranial aneurysm [Unknown]
  - Therapy interrupted [Not Recovered/Not Resolved]
  - Product availability issue [Not Recovered/Not Resolved]

NARRATIVE: CASE EVENT DATE: 20250916
